FAERS Safety Report 5575264-1 (Version None)
Quarter: 2007Q4

REPORT INFORMATION
  Report Type: 
  Country: None (occurrence: None)
  Receive Date: 20071221
  Receipt Date: 20071213
  Transmission Date: 20080405
  Serious: Yes (Hospitalization)
  Sender: FDA-Public Use
  Company Number: 231251J07USA

PATIENT
  Age: 57 Year
  Sex: Female
  Weight: 78.9259 kg

DRUGS (3)
  1. REBIF [Suspect]
     Indication: MULTIPLE SCLEROSIS
     Dosage: 44 MCG, 3 IN 1 WEEKS, SUBCUTANEOUS
     Route: 058
     Dates: start: 20070613
  2. NEURONTIN [Concomitant]
  3. VICODIN [Concomitant]

REACTIONS (1)
  - GASTROENTERITIS NORWALK VIRUS [None]
